FAERS Safety Report 10149455 (Version 1)
Quarter: 2014Q2

REPORT INFORMATION
  Report Type: Spontaneous
  Country: CA (occurrence: None)
  Receive Date: 20140430
  Receipt Date: 20140430
  Transmission Date: 20141212
  Serious: Yes (Other)
  Sender: FDA-Public Use
  Company Number: 2-0414-05

PATIENT
  Sex: Male

DRUGS (1)
  1. DERMA-SMOOTHE-FS [Suspect]
     Indication: PSORIASIS
     Route: 061

REACTIONS (2)
  - Asthenia [None]
  - Abasia [None]
